FAERS Safety Report 18380608 (Version 2)
Quarter: 2020Q4

REPORT INFORMATION
  Report Type: Spontaneous
  Country: JP (occurrence: JP)
  Receive Date: 20201014
  Receipt Date: 20201119
  Transmission Date: 20210114
  Serious: No
  Sender: FDA-Public Use
  Company Number: JP-AMGEN-JPNSP2020162883

PATIENT

DRUGS (2)
  1. EVENITY [Suspect]
     Active Substance: ROMOSOZUMAB-AQQG
     Indication: OSTEOPOROSIS
     Dosage: 210 MILLIGRAM
     Route: 058
     Dates: start: 201903
  2. ALPHACALCIDOL [Concomitant]
     Active Substance: ALFACALCIDOL
     Dosage: 1.0 MICROGRAM

REACTIONS (1)
  - Humerus fracture [Recovered/Resolved]

NARRATIVE: CASE EVENT DATE: 201905
